FAERS Safety Report 23246188 (Version 2)
Quarter: 2023Q4

REPORT INFORMATION
  Report Type: Spontaneous
  Country: IN (occurrence: IN)
  Receive Date: 20231130
  Receipt Date: 20231221
  Transmission Date: 20240110
  Serious: Yes (Other)
  Sender: FDA-Public Use
  Company Number: IN-MYLANLABS-2023M1126838

PATIENT
  Age: 39 Year
  Sex: Female

DRUGS (3)
  1. PACLITAXEL [Suspect]
     Active Substance: PACLITAXEL
     Indication: Invasive ductal breast carcinoma
     Dosage: 150 MILLIGRAM/SQ. METER, CYCLE (12?WEEKLY CYCLES PACLITAXEL INFUSIONS?150?MG/M2)
     Route: 065
  2. DOXORUBICIN [Concomitant]
     Active Substance: DOXORUBICIN
     Indication: Invasive ductal breast carcinoma
     Dosage: 100 MILLIGRAM/SQ. METER, Q2W, INFUSION
     Route: 065
  3. CYCLOPHOSPHAMIDE [Concomitant]
     Active Substance: CYCLOPHOSPHAMIDE
     Indication: Invasive ductal breast carcinoma
     Dosage: 1000 MILLIGRAM/SQ. METER, Q2W, INFUSION
     Route: 065

REACTIONS (2)
  - Periarticular thenar erythema with onycholysis [Recovering/Resolving]
  - Rash [Recovering/Resolving]
